FAERS Safety Report 6990146-6 (Version None)
Quarter: 2010Q3

REPORT INFORMATION
  Report Type: 
  Country: None (occurrence: None)
  Receive Date: 20100916
  Receipt Date: 20100427
  Transmission Date: 20110219
  Serious: Yes (Other)
  Sender: FDA-Public Use
  Company Number: US-PFIZER INC-2010053851

PATIENT
  Sex: Female

DRUGS (1)
  1. LYRICA [Suspect]
     Dosage: UNK

REACTIONS (7)
  - CHILLS [None]
  - FALL [None]
  - HYPERHIDROSIS [None]
  - INSOMNIA [None]
  - NECK PAIN [None]
  - PAIN [None]
  - SPINAL COLUMN STENOSIS [None]
